FAERS Safety Report 5032166-7 (Version None)
Quarter: 2006Q2

REPORT INFORMATION
  Report Type: 
  Country: None (occurrence: None)
  Receive Date: 20060616
  Receipt Date: 20060608
  Transmission Date: 20061013
  Serious: Yes (Other)
  Sender: FDA-Public Use
  Company Number: 2006BL003161

PATIENT
  Age: 73 Year
  Sex: Female

DRUGS (2)
  1. TIMOLOL MALEATE [Suspect]
     Indication: GLAUCOMA
     Dosage: DAILY; TOPICAL
     Route: 061
  2. LATANOPROST [Concomitant]

REACTIONS (3)
  - FALL [None]
  - ORTHOSTATIC HYPOTENSION [None]
  - SINUS BRADYCARDIA [None]
